FAERS Safety Report 15751218 (Version 2)
Quarter: 2019Q2

REPORT INFORMATION
  Report Type: Report from Study
  Country: JP (occurrence: JP)
  Receive Date: 20181221
  Receipt Date: 20190510
  Transmission Date: 20190711
  Serious: Yes (Life-Threatening)
  Sender: FDA-Public Use
  Company Number: JP-EISAI MEDICAL RESEARCH-EC-2018-049588

PATIENT
  Age: 37 Year
  Sex: Female

DRUGS (9)
  1. FYCOMPA [Suspect]
     Active Substance: PERAMPANEL
     Route: 048
     Dates: start: 20170719, end: 20170912
  2. FYCOMPA [Suspect]
     Active Substance: PERAMPANEL
     Indication: PARTIAL SEIZURES
     Route: 048
     Dates: start: 20161017, end: 20161108
  3. FYCOMPA [Suspect]
     Active Substance: PERAMPANEL
     Route: 048
     Dates: start: 20170510, end: 20170718
  4. FYCOMPA [Suspect]
     Active Substance: PERAMPANEL
     Route: 048
     Dates: start: 20170913, end: 20171107
  5. CERCINE [Concomitant]
     Active Substance: DIAZEPAM
  6. FYCOMPA [Suspect]
     Active Substance: PERAMPANEL
     Route: 048
     Dates: start: 20161109, end: 20170509
  7. E KEPPRA [Concomitant]
     Active Substance: LEVETIRACETAM
  8. VIMPAT [Concomitant]
     Active Substance: LACOSAMIDE
  9. TOPINA [Concomitant]
     Active Substance: TOPIRAMATE

REACTIONS (1)
  - Impulsive behaviour [Recovering/Resolving]

NARRATIVE: CASE EVENT DATE: 20171021
